FAERS Safety Report 10184681 (Version 2)
Quarter: 2014Q2

REPORT INFORMATION
  Report Type: Spontaneous
  Country: DE (occurrence: DE)
  Receive Date: 20140521
  Receipt Date: 20140618
  Transmission Date: 20141212
  Serious: Yes (Death, Hospitalization)
  Sender: FDA-Public Use
  Company Number: DE-AMGEN INC.-DEUSP2014036570

PATIENT
  Age: 78 Year
  Sex: Female

DRUGS (3)
  1. ENBREL [Suspect]
     Indication: PRODUCT USED FOR UNKNOWN INDICATION
     Dosage: 50 MG, WEEKLY
     Route: 058
     Dates: start: 20130924, end: 20131001
  2. LEFLUNOMIDE [Suspect]
     Indication: POLYARTHRITIS
     Dosage: 20 MG, DAILY
     Route: 048
     Dates: start: 201205, end: 201309
  3. PREDNISOLONE [Suspect]
     Indication: POLYARTHRITIS
     Dosage: BETWEEN 20 AND 30 MG, UNK
     Route: 048
     Dates: start: 201201, end: 201310

REACTIONS (5)
  - Staphylococcal infection [Fatal]
  - Endocarditis bacterial [Fatal]
  - Arthritis bacterial [Fatal]
  - Staphylococcal sepsis [Fatal]
  - Chronic obstructive pulmonary disease [Unknown]
